FAERS Safety Report 10921212 (Version 1)
Quarter: 2015Q1

REPORT INFORMATION
  Report Type: Spontaneous
  Country: US (occurrence: None)
  Receive Date: 20150313
  Receipt Date: 20150313
  Transmission Date: 20150721
  Serious: Yes (Other)
  Sender: FDA-Public Use
  Company Number: None

PATIENT
  Age: 59 Year
  Sex: Female
  Weight: 72.58 kg

DRUGS (2)
  1. DULOXETINE, 30 MG CAPSULES [Suspect]
     Active Substance: DULOXETINE
     Indication: ANXIETY
     Dosage: 1 CAP PER DAY, BY MOURH
     Route: 048
     Dates: start: 2010
  2. DULOXETINE, 30 MG CAPSULES [Suspect]
     Active Substance: DULOXETINE
     Indication: FIBROMYALGIA
     Dosage: 1 CAP PER DAY, BY MOURH
     Route: 048
     Dates: start: 2010

REACTIONS (3)
  - Cognitive disorder [None]
  - Influenza like illness [None]
  - Reaction to drug excipients [None]

NARRATIVE: CASE EVENT DATE: 201008
